FAERS Safety Report 9682921 (Version 3)
Quarter: 2014Q1

REPORT INFORMATION
  Report Type: Spontaneous
  Country: US (occurrence: US)
  Receive Date: 20131112
  Receipt Date: 20140122
  Transmission Date: 20141002
  Serious: Yes (Other)
  Sender: FDA-Public Use
  Company Number: US-ASTELLAS-2013US011620

PATIENT
  Age: 53 Year
  Sex: Female
  Weight: 67 kg

DRUGS (2)
  1. VESICARE [Suspect]
     Indication: URGE INCONTINENCE
     Dosage: 10 MG, UID/QD
     Route: 048
     Dates: start: 2012
  2. VESICARE [Suspect]

REACTIONS (1)
  - Rotator cuff syndrome [Unknown]
